FAERS Safety Report 9503439 (Version 1)
Quarter: 2013Q1

REPORT INFORMATION
  Report Type: Spontaneous
  Country: US (occurrence: None)
  Receive Date: 20130225
  Receipt Date: 20130225
  Transmission Date: 20140127
  Serious: No
  Sender: FDA-Public Use
  Company Number: 366105

PATIENT
  Age: 72 Year
  Sex: Female

DRUGS (1)
  1. VICTOZA (LIRAGLUTIDE) SOLUTION FOR INJECTION, 6MG/ML [Suspect]
     Indication: TYPE 2 DIABETES MELLITUS
     Dosage: 09/2012 TO ONGOING 1.2 MG QD, SUBCUTANEOUS
     Route: 058
     Dates: start: 201209

REACTIONS (2)
  - Drug dose omission [None]
  - Blood glucose decreased [None]
